FAERS Safety Report 21273897 (Version 13)
Quarter: 2024Q1

REPORT INFORMATION
  Report Type: Spontaneous
  Country: IN (occurrence: IN)
  Receive Date: 20220831
  Receipt Date: 20240326
  Transmission Date: 20240410
  Serious: Yes (Hospitalization, Other)
  Sender: FDA-Public Use
  Company Number: IN-PFIZER INC-2020420960

PATIENT
  Age: 41 Year
  Sex: Female

DRUGS (14)
  1. PALBOCICLIB [Suspect]
     Active Substance: PALBOCICLIB
     Indication: Breast cancer metastatic
     Dosage: 125 MG, CYCLIC (ONCE DAILY, D1-D21)
     Route: 048
     Dates: start: 20190813
  2. PALBOCICLIB [Suspect]
     Active Substance: PALBOCICLIB
     Dosage: 125 MG, CYCLIC (ONCE DAILY, D1-D21)
     Route: 048
     Dates: start: 20191217
  3. PALBOCICLIB [Suspect]
     Active Substance: PALBOCICLIB
     Dosage: 125 MG
  4. PALBOCICLIB [Suspect]
     Active Substance: PALBOCICLIB
     Dosage: UNK
  5. PALBOCICLIB [Suspect]
     Active Substance: PALBOCICLIB
     Dosage: 100 MG, CYCLIC (D1-D21 1 WEEK OFF X3 MONTH)
  6. PALBOCICLIB [Suspect]
     Active Substance: PALBOCICLIB
     Indication: Breast cancer metastatic
     Dosage: 125 MG X 21 DAYS THEN 1 WEEK OFF
     Route: 048
  7. PALBOCICLIB [Suspect]
     Active Substance: PALBOCICLIB
     Dosage: 100 MG, CYCLIC (OD D1-D21 1 WEEK OFF X3 MONTH)
     Route: 048
  8. ZOLADEX [Concomitant]
     Active Substance: GOSERELIN ACETATE
     Dosage: 36 MG, MONTHLY
     Route: 058
  9. ZOLADEX [Concomitant]
     Active Substance: GOSERELIN ACETATE
     Dosage: 10.8 MG, EVERY 3 MONTHS
     Route: 058
  10. CALCIUM\CHOLECALCIFEROL [Concomitant]
     Active Substance: CALCIUM\CHOLECALCIFEROL
     Dosage: 1 DF, DAILY
  11. LETROZOLE [Concomitant]
     Active Substance: LETROZOLE
     Indication: Breast cancer metastatic
     Dosage: 2.5 MG, DAILY
  12. CALCEOME + [Concomitant]
     Dosage: 1-0-1
  13. DENOSUMAB [Concomitant]
     Active Substance: DENOSUMAB
     Dosage: 60 MG
     Route: 058
     Dates: start: 202205
  14. GRAFEEL [Concomitant]
     Dosage: UNK
     Dates: start: 20231024

REACTIONS (45)
  - COVID-19 [Unknown]
  - Breast conserving surgery [Unknown]
  - Lymphadenectomy [Unknown]
  - Leukopenia [Unknown]
  - Neutropenia [Unknown]
  - Dermatitis [Unknown]
  - Red blood cell sedimentation rate increased [Unknown]
  - Red cell distribution width increased [Unknown]
  - Dysentery [Unknown]
  - Urinary tract infection [Recovering/Resolving]
  - Platelet count decreased [Unknown]
  - Mean cell haemoglobin decreased [Unknown]
  - Mean cell haemoglobin concentration decreased [Unknown]
  - Mean platelet volume increased [Unknown]
  - Platelet distribution width increased [Unknown]
  - Platelet count increased [Unknown]
  - Lymphocyte percentage increased [Unknown]
  - Lymphocyte count decreased [Unknown]
  - Monocyte count decreased [Unknown]
  - Haemoglobin decreased [Unknown]
  - Haematocrit decreased [Unknown]
  - Red blood cell count decreased [Unknown]
  - Mean cell haemoglobin increased [Unknown]
  - Monocyte count increased [Unknown]
  - Blood phosphorus decreased [Unknown]
  - Blood chloride increased [Unknown]
  - High density lipoprotein increased [Unknown]
  - Albumin globulin ratio increased [Unknown]
  - Alanine aminotransferase decreased [Unknown]
  - Blood uric acid decreased [Unknown]
  - Eosinophil count decreased [Unknown]
  - Mean cell volume increased [Unknown]
  - Bone pain [Unknown]
  - Osteoporosis [Unknown]
  - Aspartate aminotransferase decreased [Unknown]
  - Blood alkaline phosphatase decreased [Unknown]
  - Blood urea decreased [Unknown]
  - Blood creatinine decreased [Unknown]
  - Lymphopenia [Unknown]
  - Anaemia macrocytic [Unknown]
  - Infection [Unknown]
  - Pyrexia [Unknown]
  - Neoplasm progression [Unknown]
  - Diarrhoea [Unknown]
  - Scar [Unknown]

NARRATIVE: CASE EVENT DATE: 20230508
